FAERS Safety Report 5931220-2 (Version None)
Quarter: 2008Q4

REPORT INFORMATION
  Report Type: 
  Country: None (occurrence: None)
  Receive Date: 20081023
  Receipt Date: 20060324
  Transmission Date: 20090506
  Serious: Yes (Disabling, Other)
  Sender: FDA-Public Use
  Company Number: 2006AL001956

PATIENT
  Age: 65 Year
  Sex: Male

DRUGS (9)
  1. ACYCLOVIR [Suspect]
     Indication: HERPES ZOSTER
     Dosage: 4000 MG; QD; PO
     Route: 048
     Dates: start: 20060210, end: 20060215
  2. DOXAZOSIN MESYLATE [Suspect]
     Dosage: 8 MG; BID; PO
     Route: 048
  3. LISINOPRIL [Concomitant]
  4. AMILORIDE HYDROCHLORIDE [Concomitant]
  5. ADALAT [Concomitant]
  6. MOXONIDINE [Concomitant]
  7. ATENOLOL [Concomitant]
  8. SILDENAFIL CITRATE [Concomitant]
  9. GLICLAZIDE [Concomitant]

REACTIONS (2)
  - BACK PAIN [None]
  - RENAL PAIN [None]
